FAERS Safety Report 20245997 (Version 2)
Quarter: 2022Q1

REPORT INFORMATION
  Report Type: Report from Study
  Country: US (occurrence: US)
  Receive Date: 20211229
  Receipt Date: 20220114
  Transmission Date: 20220423
  Serious: No
  Sender: FDA-Public Use
  Company Number: US-REGENERON PHARMACEUTICALS, INC.-2021-117243

PATIENT

DRUGS (1)
  1. CASIRIVIMAB\IMDEVIMAB [Suspect]
     Active Substance: CASIRIVIMAB\IMDEVIMAB
     Indication: COVID-19 treatment
     Dosage: 1200 MG IMDEVIMAB, SINGLE
     Route: 042
     Dates: start: 20211215, end: 20211215

REACTIONS (1)
  - Single component of a two-component product administered [Unknown]

NARRATIVE: CASE EVENT DATE: 20211215
